FAERS Safety Report 8016629-8 (Version None)
Quarter: 2011Q4

REPORT INFORMATION
  Report Type: 
  Country: None (occurrence: None)
  Receive Date: 20111231
  Receipt Date: 20111222
  Transmission Date: 20120403
  Serious: Yes (Hospitalization, Other)
  Sender: FDA-Public Use
  Company Number: PHHY2011IT101976

PATIENT
  Age: 79 Year
  Sex: Female

DRUGS (5)
  1. LEVOTHYROXINE SODIUM [Concomitant]
  2. ACETYLSALICYLIC ACID SRT [Concomitant]
  3. WARFARIN SODIUM [Concomitant]
  4. INSULIN [Concomitant]
  5. ENOXAPARIN [Suspect]

REACTIONS (13)
  - FLUSHING [None]
  - DEEP VEIN THROMBOSIS [None]
  - ASTHENIA [None]
  - PALLOR [None]
  - NORMOCHROMIC NORMOCYTIC ANAEMIA [None]
  - ERYTHEMA [None]
  - CARDIAC MYXOMA [None]
  - PRESYNCOPE [None]
  - OEDEMA PERIPHERAL [None]
  - HEPARIN-INDUCED THROMBOCYTOPENIA [None]
  - PAIN IN EXTREMITY [None]
  - MALAISE [None]
  - HYPERHIDROSIS [None]
